FAERS Safety Report 12539876 (Version 3)
Quarter: 2016Q3

REPORT INFORMATION
  Report Type: Spontaneous
  Country: US (occurrence: US)
  Receive Date: 20160708
  Receipt Date: 20160826
  Transmission Date: 20161109
  Serious: Yes (Death, Hospitalization)
  Sender: FDA-Public Use
  Company Number: US-UNITED THERAPEUTICS-UNT-2016-010626

PATIENT
  Sex: Female

DRUGS (2)
  1. REMODULIN [Suspect]
     Active Substance: TREPROSTINIL
     Indication: PULMONARY ARTERIAL HYPERTENSION
     Dosage: 0.042 ?G/KG, CONTINUING
     Route: 041
     Dates: start: 20120727, end: 20160708
  2. REMODULIN [Suspect]
     Active Substance: TREPROSTINIL
     Dosage: UNK
     Route: 041
     Dates: start: 20151119, end: 20160708

REACTIONS (3)
  - Traumatic ulcer [Unknown]
  - Postoperative wound infection [Unknown]
  - Sepsis [Fatal]

NARRATIVE: CASE EVENT DATE: 20160621
